FAERS Safety Report 25145802 (Version 3)
Quarter: 2025Q2

REPORT INFORMATION
  Report Type: Spontaneous
  Country: US (occurrence: US)
  Receive Date: 20250401
  Receipt Date: 20250616
  Transmission Date: 20250716
  Serious: Yes (Other)
  Sender: PFIZER
  Company Number: US-PFIZER INC-PV202500038537

PATIENT
  Age: 48 Year
  Sex: Female

DRUGS (3)
  1. DOCETAXEL [Suspect]
     Active Substance: DOCETAXEL
     Indication: Triple positive breast cancer
     Dates: start: 20230222, end: 20230607
  2. TAXOTERE [Suspect]
     Active Substance: DOCETAXEL
     Dates: start: 20230222, end: 20230607
  3. CARBOPLATIN [Concomitant]
     Active Substance: CARBOPLATIN
     Indication: Chemotherapy

REACTIONS (5)
  - Dry eye [Not Recovered/Not Resolved]
  - Lacrimal structure injury [Not Recovered/Not Resolved]
  - Lacrimation increased [Not Recovered/Not Resolved]
  - Dacryostenosis acquired [Not Recovered/Not Resolved]
  - Keratitis [Unknown]

NARRATIVE: CASE EVENT DATE: 20230101
